FAERS Safety Report 10453631 (Version 1)
Quarter: 2014Q3

REPORT INFORMATION
  Report Type: Spontaneous
  Country: FR (occurrence: FR)
  Receive Date: 20140915
  Receipt Date: 20140915
  Transmission Date: 20150326
  Serious: Yes (Hospitalization, Other)
  Sender: FDA-Public Use
  Company Number: FR-PFIZER INC-2014251746

PATIENT
  Age: 82 Year
  Sex: Female

DRUGS (3)
  1. LOGIMAX [Concomitant]
     Active Substance: FELODIPINE\METOPROLOL SUCCINATE
     Indication: HYPERTENSION
     Dosage: UNK
     Route: 048
     Dates: end: 20140809
  2. ACUILIX [Suspect]
     Active Substance: HYDROCHLOROTHIAZIDE\QUINAPRIL HYDROCHLORIDE
     Indication: HYPERTENSION
     Dosage: UNK
     Route: 048
     Dates: end: 20140809
  3. VENLAFAXINE HCL [Suspect]
     Active Substance: VENLAFAXINE HYDROCHLORIDE
     Indication: DEPRESSION
     Dosage: UNK
     Route: 048
     Dates: start: 20140804, end: 20140809

REACTIONS (6)
  - Inflammation [Unknown]
  - Confusional state [Unknown]
  - Gait disturbance [Unknown]
  - Hyponatraemia [Recovering/Resolving]
  - Cholestasis [Unknown]
  - Anaemia [Unknown]

NARRATIVE: CASE EVENT DATE: 20140808
